FAERS Safety Report 5363733-9 (Version None)
Quarter: 2007Q2

REPORT INFORMATION
  Report Type: 
  Country: None (occurrence: None)
  Receive Date: 20070620
  Receipt Date: 20070611
  Transmission Date: 20071010
  Serious: Yes (Death, Life-Threatening, Other)
  Sender: FDA-Public Use
  Company Number: JP-BRISTOL-MYERS SQUIBB COMPANY-13810940

PATIENT
  Age: 78 Year
  Sex: Female

DRUGS (5)
  1. ARIPIPRAZOLE [Suspect]
     Indication: SCHIZOPHRENIA
     Route: 048
     Dates: start: 20070502, end: 20070604
  2. GLICLAZIDE [Suspect]
     Indication: DIABETES MELLITUS
     Route: 048
     Dates: start: 20070328, end: 20070604
  3. BIPERIDEN HYDROCHLORIDE TAB [Concomitant]
     Indication: EXTRAPYRAMIDAL DISORDER
     Route: 048
     Dates: end: 20070604
  4. FLUNITRAZEPAM [Concomitant]
     Indication: INSOMNIA
     Route: 048
     Dates: end: 20070604
  5. RISPERIDONE [Concomitant]
     Route: 048
     Dates: start: 20070516, end: 20070604

REACTIONS (3)
  - HEPATIC FUNCTION ABNORMAL [None]
  - LEUKOPENIA [None]
  - PNEUMONIA [None]
